FAERS Safety Report 5327112-2 (Version None)
Quarter: 2007Q2

REPORT INFORMATION
  Report Type: 
  Country: None (occurrence: None)
  Receive Date: 20070514
  Receipt Date: 20070430
  Transmission Date: 20071010
  Serious: Yes (Other)
  Sender: FDA-Public Use
  Company Number: US-1162782

PATIENT
  Sex: Female

DRUGS (1)
  1. SYSTANE EYE DROPS [Suspect]
     Indication: DRY EYE
     Dosage: (1 GTT QD OPHTHALMIC)
     Route: 047
     Dates: start: 20061213, end: 20070326

REACTIONS (7)
  - CORNEAL SCAR [None]
  - EYE INFECTION [None]
  - EYE PAIN [None]
  - INTRAOCULAR PRESSURE INCREASED [None]
  - PHOTOPHOBIA [None]
  - ULCERATIVE KERATITIS [None]
  - VISUAL ACUITY REDUCED [None]
